FAERS Safety Report 13675146 (Version 1)
Quarter: 2017Q2

REPORT INFORMATION
  Report Type: Spontaneous
  Country: JP (occurrence: JP)
  Receive Date: 20170621
  Receipt Date: 20170621
  Transmission Date: 20170830
  Serious: Yes (Other)
  Sender: FDA-Public Use
  Company Number: JP-ASTRAZENECA-2017SE63537

PATIENT
  Sex: Female

DRUGS (2)
  1. NEXIUM [Suspect]
     Active Substance: ESOMEPRAZOLE MAGNESIUM
     Indication: ABDOMINAL DISCOMFORT
     Dosage: DOSE UNKNOWN, BASICALLY 10 MG DAILY, 20 MG DAILY AS REQUIRED FOR POOR STOMACH CONDITION
     Route: 048
  2. NEXIUM [Suspect]
     Active Substance: ESOMEPRAZOLE MAGNESIUM
     Indication: GASTROOESOPHAGEAL REFLUX DISEASE
     Dosage: DOSE UNKNOWN, BASICALLY 10 MG DAILY, 20 MG DAILY AS REQUIRED FOR POOR STOMACH CONDITION
     Route: 048

REACTIONS (3)
  - Palpitations [Recovered/Resolved]
  - Myocardial infarction [Unknown]
  - Autoimmune thyroiditis [Unknown]
